FAERS Safety Report 4320948-6 (Version None)
Quarter: 2004Q1

REPORT INFORMATION
  Report Type: 
  Country: None (occurrence: None)
  Receive Date: 20040318
  Receipt Date: 20040301
  Transmission Date: 20041129
  Serious: Yes (Hospitalization)
  Sender: FDA-Public Use
  Company Number: A03200400609

PATIENT
  Sex: Male

DRUGS (1)
  1. ELIGARD (LEUPROLIDE ACETATE) SUSPENSION - 22.5 MG [Suspect]
     Indication: PROSTATE CANCER
     Dosage: 22.5 MG OTHER - SUBCUTANEOUS
     Route: 058
     Dates: start: 20040205, end: 20040205

REACTIONS (3)
  - INJECTION SITE ERYTHEMA [None]
  - INJECTION SITE PAIN [None]
  - INJECTION SITE ULCER [None]
